FAERS Safety Report 8369147-1 (Version None)
Quarter: 2012Q2

REPORT INFORMATION
  Report Type: 
  Country: None (occurrence: None)
  Receive Date: 20120518
  Receipt Date: 20120509
  Transmission Date: 20120825
  Serious: Yes (Other)
  Sender: FDA-Public Use
  Company Number: US-SANOFI-AVENTIS-2012SA029822

PATIENT
  Age: 77 Year
  Sex: Female
  Weight: 112.24 kg

DRUGS (6)
  1. LANTUS [Suspect]
     Dosage: DOSE:50 UNIT(S)
     Route: 058
  2. SOLOSTAR [Suspect]
  3. LANTUS [Suspect]
     Dosage: 64 UNITS IN MORNING AND 24 UNITS IN EVENING
     Route: 058
  4. LEVOTHYROXINE SODIUM [Concomitant]
     Indication: THYROID DISORDER
     Dosage: 1 PER DAY
     Dates: start: 20000101
  5. NOVOLOG [Concomitant]
     Dosage: SLIDING SCALE
  6. ALL OTHER THERAPEUTIC PRODUCTS [Concomitant]
     Indication: BLOOD PRESSURE
     Dosage: 1 PER DAY
     Dates: start: 20000101

REACTIONS (7)
  - MEDICATION ERROR [None]
  - BLOOD GLUCOSE INCREASED [None]
  - WEIGHT DECREASED [None]
  - FEELING ABNORMAL [None]
  - FATIGUE [None]
  - PNEUMONIA [None]
  - BLOOD GLUCOSE DECREASED [None]
